FAERS Safety Report 8435216-0 (Version None)
Quarter: 2012Q2

REPORT INFORMATION
  Report Type: 
  Country: None (occurrence: None)
  Receive Date: 20120614
  Receipt Date: 20120606
  Transmission Date: 20120825
  Serious: Yes (Hospitalization)
  Sender: FDA-Public Use
  Company Number: NL-ASTELLAS-2012US005045

PATIENT
  Sex: Female
  Weight: 65 kg

DRUGS (8)
  1. GDC-0941 [Suspect]
     Dosage: 340 DF, UID/QD
     Route: 048
  2. LOPERAMIDE [Concomitant]
     Indication: DIARRHOEA
     Dosage: 2 MG, UNKNOWN/D
     Route: 048
     Dates: start: 20120501
  3. ZOPICLON [Concomitant]
     Indication: INSOMNIA
     Dosage: 0.5 DF, UNKNOWN/D
     Route: 048
     Dates: start: 20120416
  4. GDC-0941 [Suspect]
     Indication: NON-SMALL CELL LUNG CANCER
     Dosage: 340 DF, UID/QD
     Route: 048
     Dates: start: 20120423, end: 20120504
  5. ENALAPRIL                          /00574902/ [Concomitant]
     Indication: HYPERTENSION
     Dosage: 5 MG, UNKNOWN/D
     Route: 048
     Dates: start: 20120407
  6. OXAZEPAM [Concomitant]
     Indication: INSOMNIA
     Dosage: 5 MG, UNKNOWN/D
     Route: 048
  7. ERLOTINIB HYDROCHLORIDE [Suspect]
     Indication: NON-SMALL CELL LUNG CANCER
     Dosage: 100 MG, UID/QD
     Route: 048
     Dates: start: 20111222, end: 20120416
  8. ERLOTINIB HYDROCHLORIDE [Suspect]
     Dosage: 75 MG, UID/QD
     Route: 048
     Dates: start: 20120423

REACTIONS (7)
  - RASH [None]
  - SKIN TOXICITY [None]
  - ORAL CANDIDIASIS [None]
  - FACE OEDEMA [None]
  - INCORRECT DOSE ADMINISTERED [None]
  - PYREXIA [None]
  - STOMATITIS [None]
